FAERS Safety Report 21323711 (Version 1)
Quarter: 2022Q3

REPORT INFORMATION
  Report Type: Spontaneous
  Country: US (occurrence: US)
  Receive Date: 20220912
  Receipt Date: 20220912
  Transmission Date: 20221027
  Serious: Yes (Hospitalization)
  Sender: FDA-Public Use
  Company Number: US-ELITE LABORATORIES INC.-2022ELT00083

PATIENT
  Age: 20 Year
  Sex: Female

DRUGS (15)
  1. NALTREXONE [Suspect]
     Active Substance: NALTREXONE
     Indication: Alcoholism
     Dosage: 50 MG, 1X/DAY
     Route: 048
     Dates: start: 20210212, end: 20210216
  2. NALTREXONE [Suspect]
     Active Substance: NALTREXONE
     Dosage: 50 MG, 1X/DAY
     Route: 048
     Dates: start: 20210512
  3. LITHIUM [Concomitant]
     Active Substance: LITHIUM
     Dosage: 1200 MG, 1X/DAY
     Route: 065
     Dates: start: 202011
  4. METFORMIN [Concomitant]
     Active Substance: METFORMIN HYDROCHLORIDE
     Dosage: 750 MG, 2X/DAY
     Route: 048
     Dates: end: 20210517
  5. METFORMIN [Concomitant]
     Active Substance: METFORMIN HYDROCHLORIDE
     Dosage: RESTARTED
     Route: 065
     Dates: start: 20210519
  6. DIVALPROEX SODIUM [Concomitant]
     Active Substance: DIVALPROEX SODIUM
     Dosage: 1000 MG, 1X/DAY
     Route: 048
     Dates: end: 20210517
  7. DIVALPROEX SODIUM [Concomitant]
     Active Substance: DIVALPROEX SODIUM
     Dosage: RESTARTED
     Route: 065
     Dates: start: 20210519
  8. CLONAZEPAM [Concomitant]
     Active Substance: CLONAZEPAM
     Dosage: 1 MG, 1X/DAY
     Route: 048
     Dates: end: 20210517
  9. CLONAZEPAM [Concomitant]
     Active Substance: CLONAZEPAM
     Dosage: RESTARTED
     Route: 065
     Dates: start: 20210519
  10. CLONIDINE [Concomitant]
     Active Substance: CLONIDINE
     Dosage: 0.1 MG, 1X/DAY
     Route: 048
     Dates: end: 20210517
  11. CLONIDINE [Concomitant]
     Active Substance: CLONIDINE
     Dosage: RESTARTED
     Route: 065
     Dates: start: 20210519
  12. HYDROCORTISONE [Concomitant]
     Active Substance: HYDROCORTISONE
     Dosage: TO AFFECTED AREAS EVERY 12 HOURS
     Route: 065
     Dates: end: 20210517
  13. HYDROCORTISONE [Concomitant]
     Active Substance: HYDROCORTISONE
     Dosage: RESTARTED
     Route: 065
     Dates: start: 20210519
  14. TRIAMCINOLONE [Concomitant]
     Active Substance: TRIAMCINOLONE
     Dosage: TO AFFECTED AREAS EVERY 12 HOURS
     Route: 065
     Dates: end: 20210517
  15. TRIAMCINOLONE [Concomitant]
     Active Substance: TRIAMCINOLONE
     Dosage: RESTARTED
     Route: 065
     Dates: start: 20210519

REACTIONS (1)
  - Eosinophilic pustular folliculitis [Recovering/Resolving]

NARRATIVE: CASE EVENT DATE: 20210212
